FAERS Safety Report 9720651 (Version 3)
Quarter: 2013Q4

REPORT INFORMATION
  Report Type: Spontaneous
  Country: DE (occurrence: DE)
  Receive Date: 20131129
  Receipt Date: 20131213
  Transmission Date: 20140711
  Serious: Yes (Hospitalization, Other)
  Sender: FDA-Public Use
  Company Number: PHHY2013DE105807

PATIENT
  Age: 72 Year
  Sex: Female

DRUGS (6)
  1. AFINITOR [Suspect]
     Indication: BREAST CANCER
     Dosage: 10 MG, QD
     Route: 048
     Dates: start: 201211, end: 201212
  2. AFINITOR [Suspect]
     Dosage: 5 MG, QOD
     Route: 048
     Dates: start: 201301, end: 201303
  3. ANTIARRHYTHMIC AGENTS [Concomitant]
  4. CHEMOTHERAPEUTICS [Concomitant]
  5. RADIATION THERAPY [Concomitant]
  6. ANTIBIOTICS [Concomitant]

REACTIONS (10)
  - Pneumonitis [Recovered/Resolved]
  - Dyspnoea [Recovered/Resolved]
  - Crepitations [Recovered/Resolved]
  - Cough [Recovered/Resolved]
  - Chest discomfort [Recovered/Resolved]
  - Chest pain [Recovered/Resolved]
  - Fatigue [Recovered/Resolved]
  - Malaise [Recovered/Resolved]
  - Wheezing [Recovered/Resolved]
  - C-reactive protein increased [Unknown]
